FAERS Safety Report 4277875-2 (Version None)
Quarter: 2004Q1

REPORT INFORMATION
  Report Type: 
  Country: None (occurrence: None)
  Receive Date: 20040112
  Receipt Date: 20031231
  Transmission Date: 20041129
  Serious: Yes (Hospitalization)
  Sender: FDA-Public Use
  Company Number: 2004192422

PATIENT
  Age: 71 Year
  Sex: Male
  Weight: 80.7 kg

DRUGS (5)
  1. CAPECITABINE(CAPECITABINE) [Suspect]
     Indication: COLON CANCER
     Dosage: 1000 MG/M2, BID, ORAL
     Route: 048
     Dates: start: 20031217, end: 20031229
  2. CELECOXIB VS PLACEBO (CELECOXIB VS PLACEBO)CAPSULE [Suspect]
     Indication: COLON CANCER
     Dosage: 400 MG, BID, ORAL
     Route: 048
     Dates: start: 20031217, end: 20031229
  3. ENALAPRIL MALEATE [Concomitant]
  4. HYDROCHLOROTHIAZIDE [Concomitant]
  5. ZOLOFT [Concomitant]

REACTIONS (10)
  - ANOREXIA [None]
  - ASTHENIA [None]
  - BLOOD PRESSURE DECREASED [None]
  - DEHYDRATION [None]
  - DIARRHOEA [None]
  - HAEMATOCRIT DECREASED [None]
  - HAEMOGLOBIN DECREASED [None]
  - LEUKOPENIA [None]
  - NEUTROPENIA [None]
  - PLATELET COUNT DECREASED [None]
